FAERS Safety Report 10197506 (Version 4)
Quarter: 2015Q4

REPORT INFORMATION
  Report Type: Report from Study
  Country: AU (occurrence: AU)
  Receive Date: 20140527
  Receipt Date: 20151015
  Transmission Date: 20160304
  Serious: Yes (Hospitalization)
  Sender: FDA-Public Use
  Company Number: AU-SA-2014SA063216

PATIENT
  Age: 46 Year
  Sex: Female

DRUGS (5)
  1. AUBAGIO [Suspect]
     Active Substance: TERIFLUNOMIDE
     Indication: MULTIPLE SCLEROSIS
     Route: 048
     Dates: start: 20130510, end: 20151007
  2. MICARDIS [Concomitant]
     Active Substance: TELMISARTAN
     Dosage: MICARDIS 80
  3. HYDREA [Concomitant]
     Active Substance: HYDROXYUREA
  4. WARFARIN [Concomitant]
     Active Substance: WARFARIN
  5. VITAMIN D [Concomitant]
     Active Substance: CHOLECALCIFEROL

REACTIONS (4)
  - Feeling abnormal [Unknown]
  - Balance disorder [Unknown]
  - Vertigo [Recovering/Resolving]
  - Dyspnoea [Unknown]

NARRATIVE: CASE EVENT DATE: 20140201
